FAERS Safety Report 7375170-6 (Version None)
Quarter: 2011Q1

REPORT INFORMATION
  Report Type: 
  Country: None (occurrence: None)
  Receive Date: 20110325
  Receipt Date: 20110322
  Transmission Date: 20110831
  Serious: Yes (Death, Hospitalization)
  Sender: FDA-Public Use
  Company Number: IT-ROCHE-761426

PATIENT
  Sex: Female
  Weight: 65 kg

DRUGS (3)
  1. FLUOROURACIL [Suspect]
     Dosage: FORM: 2400 MG/M2, PERMANENTLY DISCONTINUED
     Route: 042
     Dates: start: 20110117, end: 20110131
  2. IRINOTECAN HYDROCHLORIDE [Suspect]
     Dosage: FORM: 180 MG/M2, PERMANENTLY DISCONTINUED
     Route: 042
     Dates: start: 20110117, end: 20110131
  3. BEVACIZUMAB [Suspect]
     Dosage: FORM: 5 MG/KG, PERMANENTLY DISCONTINUED.
     Route: 042
     Dates: start: 20110117, end: 20110131

REACTIONS (3)
  - DEATH [None]
  - DIARRHOEA [None]
  - FATIGUE [None]
